FAERS Safety Report 8795632 (Version 1)
Quarter: 2012Q4

REPORT INFORMATION
  Report Type: 
  Country: BR (occurrence: BR)
  Receive Date: 20120917
  Receipt Date: 20120917
  Transmission Date: 20130627
  Serious: Yes (Hospitalization)
  Sender: FDA-Public Use
  Company Number: BR-ASTRAZENECA-2012SE64953

PATIENT
  Age: 78 Year
  Sex: Male
  Weight: 75 kg

DRUGS (4)
  1. CRESTOR [Suspect]
     Indication: BLOOD CHOLESTEROL INCREASED
     Route: 048
     Dates: end: 2012
  2. CRESTOR [Suspect]
     Indication: BLOOD CHOLESTEROL INCREASED
     Route: 048
     Dates: start: 2012
  3. SELOZOK [Suspect]
     Indication: HYPERTENSION
     Route: 048
  4. ADALAT ORUS [Concomitant]
     Indication: HYPERTENSION
     Route: 048

REACTIONS (3)
  - Renal failure [Recovering/Resolving]
  - Blood cholesterol increased [Recovered/Resolved]
  - Drug ineffective [Recovered/Resolved]
